FAERS Safety Report 7994296-7 (Version None)
Quarter: 2011Q4

REPORT INFORMATION
  Report Type: 
  Country: None (occurrence: None)
  Receive Date: 20111220
  Receipt Date: 20111214
  Transmission Date: 20120403
  Serious: No
  Sender: FDA-Public Use
  Company Number: US-BAYER-2011-121531

PATIENT
  Age: 32 Year
  Sex: Female

DRUGS (1)
  1. ULTRAVIST 150 [Suspect]
     Indication: ANGIOGRAM
     Dosage: 100 ML, ONCE
     Route: 042
     Dates: start: 20111213, end: 20111213

REACTIONS (4)
  - PRURITUS [None]
  - EYE SWELLING [None]
  - URTICARIA [None]
  - COUGH [None]
